FAERS Safety Report 16097874 (Version 2)
Quarter: 2021Q1

REPORT INFORMATION
  Report Type: Report from Study
  Country: CA (occurrence: CA)
  Receive Date: 20190320
  Receipt Date: 20210208
  Transmission Date: 20210419
  Serious: Yes (Hospitalization)
  Sender: FDA-Public Use
  Company Number: CA-BIOGEN-2017BI00410576

PATIENT
  Age: 39 Year
  Sex: Female

DRUGS (2)
  1. TYSABRI [Suspect]
     Active Substance: NATALIZUMAB
     Dosage: INFUSED OVER ONE HOUR
     Route: 042
  2. TYSABRI [Suspect]
     Active Substance: NATALIZUMAB
     Indication: MULTIPLE SCLEROSIS
     Dosage: INFUSED OVER ONE HOUR
     Route: 042
     Dates: start: 20110419, end: 20190904

REACTIONS (9)
  - Musculoskeletal disorder [Unknown]
  - Multiple sclerosis relapse [Not Recovered/Not Resolved]
  - Groin abscess [Not Recovered/Not Resolved]
  - Infection [Unknown]
  - Hypoaesthesia [Unknown]
  - Perineal fistula [Not Recovered/Not Resolved]
  - Hepatic enzyme increased [Unknown]
  - Bone disorder [Unknown]
  - Prescribed underdose [Unknown]

NARRATIVE: CASE EVENT DATE: 201902
